FAERS Safety Report 23838890 (Version 1)
Quarter: 2024Q2

REPORT INFORMATION
  Report Type: Other
  Country: US (occurrence: IN)
  Receive Date: 20240509
  Receipt Date: 20240509
  Transmission Date: 20240716
  Serious: Yes (Hospitalization)
  Sender: FDA-Public Use
  Company Number: IN-Saptalis Pharmaceuticals LLC-2156823

PATIENT
  Age: 20 Year
  Sex: Female
  Weight: 50 kg

DRUGS (1)
  1. LIKMEZ [Suspect]
     Active Substance: METRONIDAZOLE

REACTIONS (4)
  - Encephalitis [Recovered/Resolved]
  - Balance disorder [Recovered/Resolved]
  - Dysarthria [Recovered/Resolved]
  - Ataxia [Recovered/Resolved]
